FAERS Safety Report 5872439-9 (Version None)
Quarter: 2008Q3

REPORT INFORMATION
  Report Type: 
  Country: None (occurrence: None)
  Receive Date: 20080905
  Receipt Date: 20080829
  Transmission Date: 20090109
  Serious: Yes (Other)
  Sender: FDA-Public Use
  Company Number: PHHY2008DE19945

PATIENT
  Sex: Male

DRUGS (3)
  1. PROVAS 160 MAXX [Suspect]
     Dosage: 0.5 DF, BID
  2. MARCUMAR [Concomitant]
  3. PRAVASTATIN [Concomitant]

REACTIONS (2)
  - ASTHMA [None]
  - FLATULENCE [None]
